FAERS Safety Report 12465345 (Version 1)
Quarter: 2016Q2

REPORT INFORMATION
  Report Type: Report from Study
  Country: PT (occurrence: PT)
  Receive Date: 20160614
  Receipt Date: 20160614
  Transmission Date: 20160815
  Serious: Yes (Other)
  Sender: FDA-Public Use
  Company Number: PT-BIOGEN-2016BI00250396

PATIENT
  Sex: Female

DRUGS (1)
  1. AVONEX [Suspect]
     Active Substance: INTERFERON BETA-1A
     Indication: RELAPSING-REMITTING MULTIPLE SCLEROSIS
     Route: 030
     Dates: start: 2011, end: 201502

REACTIONS (4)
  - Suicide attempt [Unknown]
  - Depression [Unknown]
  - Multiple sclerosis relapse [Unknown]
  - Intentional overdose [Unknown]

NARRATIVE: CASE EVENT DATE: 2012
